FAERS Safety Report 14344911 (Version 1)
Quarter: 2018Q1

REPORT INFORMATION
  Report Type: Report from Study
  Country: None (occurrence: CA)
  Receive Date: 20180103
  Receipt Date: 20180103
  Transmission Date: 20180509
  Serious: Yes (Other)
  Sender: FDA-Public Use
  Company Number: CA-ABBVIE-17K-028-2208073-00

PATIENT
  Sex: Male

DRUGS (1)
  1. HUMIRA [Suspect]
     Active Substance: ADALIMUMAB
     Indication: CROHN^S DISEASE
     Route: 058
     Dates: start: 20131001

REACTIONS (8)
  - Anxiety [Unknown]
  - Crohn^s disease [Unknown]
  - Small intestinal obstruction [Unknown]
  - Aphthous ulcer [Unknown]
  - Ileal stenosis [Unknown]
  - Abdominal lymphadenopathy [Unknown]
  - Abdominal pain [Unknown]
  - Hypertrophy [Unknown]

NARRATIVE: CASE EVENT DATE: 2017
